FAERS Safety Report 11630822 (Version 2)
Quarter: 2015Q4

REPORT INFORMATION
  Report Type: Spontaneous
  Country: US (occurrence: US)
  Receive Date: 20151014
  Receipt Date: 20151023
  Transmission Date: 20160304
  Serious: No
  Sender: FDA-Public Use
  Company Number: US-009507513-1510USA006689

PATIENT
  Sex: Female

DRUGS (1)
  1. JANUVIA [Suspect]
     Active Substance: SITAGLIPTIN PHOSPHATE
     Indication: FOOD CRAVING
     Dosage: JUST WHEN SHE HAS A BAD CARB BINGE
     Route: 048

REACTIONS (3)
  - Inappropriate schedule of drug administration [Unknown]
  - Product use issue [Unknown]
  - Drug ineffective [Unknown]
